FAERS Safety Report 6014681-2 (Version None)
Quarter: 2008Q4

REPORT INFORMATION
  Report Type: 
  Country: None (occurrence: None)
  Receive Date: 20081219
  Receipt Date: 20081209
  Transmission Date: 20090506
  Serious: Yes (Other)
  Sender: FDA-Public Use
  Company Number: ES-ELI_LILLY_AND_COMPANY-ES200812003583

PATIENT
  Age: 77 Year
  Sex: Female

DRUGS (6)
  1. EVISTA [Suspect]
     Indication: OSTEOPOROSIS
     Dosage: 60 MG, UNKNOWN
     Route: 048
     Dates: start: 20030311, end: 20080109
  2. GLUCOSAMINE [Concomitant]
     Dosage: UNK, UNKNOWN
     Route: 048
     Dates: start: 20070601
  3. IDEOS [Concomitant]
     Dosage: UNK, UNKNOWN
     Route: 048
     Dates: start: 20030311
  4. LOSARTAN POTASSIUM [Concomitant]
     Dosage: 50 MG, UNKNOWN
     Route: 048
     Dates: start: 20071121
  5. OMEPRAZOLE [Concomitant]
     Dosage: 20 MG, UNKNOWN
     Route: 048
     Dates: start: 20060621
  6. PAROXETINE HCL [Concomitant]
     Dosage: 20 MG, UNKNOWN
     Route: 048
     Dates: start: 20060215

REACTIONS (1)
  - BLOOD CREATINE PHOSPHOKINASE INCREASED [None]
